FAERS Safety Report 23846409 (Version 1)
Quarter: 2024Q2

REPORT INFORMATION
  Report Type: Spontaneous
  Country: US (occurrence: US)
  Receive Date: 20240513
  Receipt Date: 20240513
  Transmission Date: 20240715
  Serious: No
  Sender: FDA-Public Use
  Company Number: US-STRIDES ARCOLAB LIMITED-2023SP018286

PATIENT
  Age: 63 Year
  Sex: Female

DRUGS (17)
  1. METHYLPHENIDATE [Suspect]
     Active Substance: METHYLPHENIDATE
     Indication: Depression
     Dosage: 10 MG DAILY
     Route: 065
     Dates: start: 2021
  2. METHYLPHENIDATE [Suspect]
     Active Substance: METHYLPHENIDATE
     Dosage: 54 MG DAILY (EXTENDED-RELEASE)
     Route: 065
  3. DIAZEPAM [Suspect]
     Active Substance: DIAZEPAM
     Indication: Catatonia
     Dosage: 7.5 MG, TID
     Route: 065
     Dates: start: 2021
  4. DIAZEPAM [Suspect]
     Active Substance: DIAZEPAM
     Indication: Paranoia
  5. SERTRALINE [Concomitant]
     Active Substance: SERTRALINE HYDROCHLORIDE
     Indication: Depression
     Dosage: 50 MILLIGRAM DAILY
     Route: 065
  6. SERTRALINE [Concomitant]
     Active Substance: SERTRALINE HYDROCHLORIDE
     Dosage: 200 MILLIGRAM DAILY
     Route: 065
     Dates: start: 2021
  7. LISINOPRIL [Concomitant]
     Active Substance: LISINOPRIL
     Indication: Hypertension
     Dosage: 20 MG DAILY
     Route: 065
  8. OMEPRAZOLE [Concomitant]
     Active Substance: DONEPEZIL HYDROCHLORIDE\OMEPRAZOLE\OMEPRAZOLE MAGNESIUM
     Indication: Erosive oesophagitis
     Dosage: 40 MG DAILY
     Route: 065
  9. OMEPRAZOLE [Concomitant]
     Active Substance: DONEPEZIL HYDROCHLORIDE\OMEPRAZOLE\OMEPRAZOLE MAGNESIUM
     Indication: Gastrooesophageal reflux disease
  10. LEVOTHYROXINE [Concomitant]
     Active Substance: LEVOTHYROXINE\LEVOTHYROXINE SODIUM
     Indication: Hypothyroidism
     Dosage: 137.5 MICROGRAM DAILY
     Route: 065
  11. LEVOTHYROXINE [Concomitant]
     Active Substance: LEVOTHYROXINE\LEVOTHYROXINE SODIUM
     Dosage: 125 MICROGRAM PER DAY
     Route: 065
  12. LORAZEPAM [Concomitant]
     Active Substance: LORAZEPAM
     Indication: Catatonia
     Dosage: 1 MG
     Route: 048
     Dates: start: 2021
  13. LORAZEPAM [Concomitant]
     Active Substance: LORAZEPAM
     Indication: Paranoia
     Dosage: 2 MG
     Route: 042
     Dates: start: 2021
  14. LORAZEPAM [Concomitant]
     Active Substance: LORAZEPAM
     Dosage: 1.5 MG, TID
     Route: 048
     Dates: start: 2021
  15. LORAZEPAM [Concomitant]
     Active Substance: LORAZEPAM
     Dosage: 2 MG, TID (SWITCHED BACK)
     Route: 065
     Dates: start: 2021
  16. LORAZEPAM [Concomitant]
     Active Substance: LORAZEPAM
     Dosage: 0.5 MG
     Route: 065
  17. PALIPERIDONE [Concomitant]
     Active Substance: PALIPERIDONE
     Indication: Schizoaffective disorder
     Dosage: 6 MILLIGRAM PER DAY
     Route: 065
     Dates: start: 2021

REACTIONS (1)
  - Off label use [Unknown]
